FAERS Safety Report 5616382-9 (Version None)
Quarter: 2008Q1

REPORT INFORMATION
  Report Type: 
  Country: None (occurrence: None)
  Receive Date: 20080204
  Receipt Date: 20080122
  Transmission Date: 20080703
  Serious: No
  Sender: FDA-Public Use
  Company Number: US022234

PATIENT
  Age: 54 Year
  Sex: Male
  Weight: 136.0791 kg

DRUGS (11)
  1. FENTORA [Suspect]
     Indication: AUTOIMMUNE DISORDER
     Dosage: 600 UG 1800UG TO 2400UG DAILY BUCCAL
     Route: 002
     Dates: start: 20070701, end: 20080101
  2. FENTORA [Suspect]
     Indication: NEUROPATHY PERIPHERAL
     Dosage: 600 UG 1800UG TO 2400UG DAILY BUCCAL
     Route: 002
     Dates: start: 20070701, end: 20080101
  3. OXYCONTIN [Concomitant]
  4. OXYCODONE HCL [Concomitant]
  5. PROVIGIL [Concomitant]
  6. KEPPRA [Concomitant]
  7. NAMENDA [Concomitant]
  8. TRICOR /00499301/ [Concomitant]
  9. LEXAPRO [Concomitant]
  10. TOPROL [Concomitant]
  11. DEMADEX [Concomitant]

REACTIONS (4)
  - APPLICATION SITE ULCER [None]
  - BURNING SENSATION MUCOSAL [None]
  - DRUG PRESCRIBING ERROR [None]
  - MOUTH ULCERATION [None]
